FAERS Safety Report 8559198-6 (Version None)
Quarter: 2012Q3

REPORT INFORMATION
  Report Type: 
  Country: None (occurrence: None)
  Receive Date: 20120802
  Receipt Date: 20120717
  Transmission Date: 20120928
  Serious: No
  Sender: FDA-Public Use
  Company Number: US-009507513-1208CAN000295

PATIENT

DRUGS (2)
  1. MUCINEX [Concomitant]
  2. CLARITIN [Suspect]

REACTIONS (1)
  - DRUG INEFFECTIVE [None]
